FAERS Safety Report 14401574 (Version 2)
Quarter: 2018Q1

REPORT INFORMATION
  Report Type: Report from Study
  Country: US (occurrence: US)
  Receive Date: 20180117
  Receipt Date: 20180119
  Transmission Date: 20180509
  Serious: No
  Sender: FDA-Public Use
  Company Number: US-ASTRAZENECA-2017SF10749

PATIENT
  Age: 31883 Day
  Sex: Female

DRUGS (8)
  1. GABAPENTIN. [Concomitant]
     Active Substance: GABAPENTIN
  2. IRESSA [Suspect]
     Active Substance: GEFITINIB
     Indication: NON-SMALL CELL LUNG CANCER
     Route: 048
     Dates: start: 20171010
  3. BENZONATATE. [Concomitant]
     Active Substance: BENZONATATE
  4. EYE DROPS FOR DRY EYES [Concomitant]
  5. SENNA [Suspect]
     Active Substance: SENNA LEAF\SENNOSIDES\SENNOSIDES A AND B
     Route: 065
  6. FLUTICASONE PROPIONATE. [Concomitant]
     Active Substance: FLUTICASONE PROPIONATE
  7. STOOL SOFTENER-LAXATIVE [Concomitant]
  8. SENNA [Suspect]
     Active Substance: SENNA LEAF\SENNOSIDES\SENNOSIDES A AND B
     Route: 065

REACTIONS (16)
  - Chest pain [Unknown]
  - Asthenia [Unknown]
  - Dry skin [Unknown]
  - Diarrhoea [Recovered/Resolved]
  - Cough [Unknown]
  - Eye swelling [Unknown]
  - Pruritus [Unknown]
  - Pruritus generalised [Unknown]
  - Skin exfoliation [Unknown]
  - Eye pruritus [Unknown]
  - Constipation [Unknown]
  - Fatigue [Unknown]
  - Erythema [Unknown]
  - Lacrimation increased [Unknown]
  - Proctalgia [Unknown]
  - Skin discomfort [Unknown]

NARRATIVE: CASE EVENT DATE: 20171026
